FAERS Safety Report 5716993-6 (Version None)
Quarter: 2008Q2

REPORT INFORMATION
  Report Type: 
  Country: None (occurrence: None)
  Receive Date: 20080424
  Receipt Date: 20080415
  Transmission Date: 20081010
  Serious: Yes (Other)
  Sender: FDA-Public Use
  Company Number: US-PFIZER INC-2008032805

PATIENT
  Sex: Female

DRUGS (1)
  1. LIPITOR [Suspect]

REACTIONS (3)
  - BREAST CANCER [None]
  - HEPATITIS C [None]
  - OVARIAN CANCER [None]
